FAERS Safety Report 4589683-3 (Version None)
Quarter: 2005Q1

REPORT INFORMATION
  Report Type: 
  Country: None (occurrence: None)
  Receive Date: 20050217
  Receipt Date: 20050710
  Transmission Date: 20050727
  Serious: Yes (Death)
  Sender: FDA-Public Use
  Company Number: MK200502-0129-1

PATIENT
  Age: 74 Year
  Sex: Male

DRUGS (2)
  1. ANAFRANIL CAP [Suspect]
     Indication: DEPRESSION
     Dosage: 37 MG, Q DAY
     Dates: start: 20041203, end: 20041205
  2. TROPARGAL [Concomitant]

REACTIONS (2)
  - CARDIO-RESPIRATORY ARREST [None]
  - NEUROLEPTIC MALIGNANT SYNDROME [None]
